FAERS Safety Report 22589862 (Version 1)
Quarter: 2023Q2

REPORT INFORMATION
  Report Type: Spontaneous
  Country: US (occurrence: None)
  Receive Date: 20230609
  Receipt Date: 20230609
  Transmission Date: 20230721
  Serious: Yes (Other)
  Sender: FDA-Public Use
  Company Number: None

PATIENT
  Age: 38 Year
  Sex: Female

DRUGS (1)
  1. BUPRENORPHINE HYDROCHLORIDE\NALOXONE [Suspect]
     Active Substance: BUPRENORPHINE HYDROCHLORIDE\NALOXONE
     Indication: Drug dependence
     Dosage: 3 TIMES A DAY SUBLINGUAL ?
     Route: 060
     Dates: start: 20190105, end: 20230226

REACTIONS (3)
  - Stomatitis [None]
  - Gingival pain [None]
  - Hyperaesthesia teeth [None]

NARRATIVE: CASE EVENT DATE: 20230214
